FAERS Safety Report 25847208 (Version 1)
Quarter: 2025Q3

REPORT INFORMATION
  Report Type: Spontaneous
  Country: CN (occurrence: CN)
  Receive Date: 20250925
  Receipt Date: 20250925
  Transmission Date: 20251021
  Serious: Yes (Other)
  Sender: AMNEAL
  Company Number: CN-AMNEAL PHARMACEUTICALS-2025-AMRX-03625

PATIENT
  Age: 31 Year
  Sex: Female

DRUGS (4)
  1. CLOBETASOL PROPIONATE [Suspect]
     Active Substance: CLOBETASOL PROPIONATE
     Indication: Psoriasis
     Route: 061
     Dates: start: 201904
  2. CLOBETASOL PROPIONATE [Suspect]
     Active Substance: CLOBETASOL PROPIONATE
     Route: 061
     Dates: start: 202001, end: 2020
  3. CLOBETASOL PROPIONATE [Suspect]
     Active Substance: CLOBETASOL PROPIONATE
     Route: 061
     Dates: start: 202010, end: 202102
  4. PARAFFIN [Suspect]
     Active Substance: PARAFFIN
     Indication: Skin atrophy
     Route: 065

REACTIONS (5)
  - Cushing^s syndrome [Recovered/Resolved]
  - Erythrodermic psoriasis [Unknown]
  - Hypoproteinaemia [Unknown]
  - Overdose [Unknown]
  - Intentional product use issue [Unknown]
